FAERS Safety Report 24212940 (Version 4)
Quarter: 2024Q3

REPORT INFORMATION
  Report Type: Spontaneous
  Country: NL (occurrence: NL)
  Receive Date: 20240815
  Receipt Date: 20240904
  Transmission Date: 20241017
  Serious: Yes (Other)
  Sender: BAYER
  Company Number: NL-BAYER-2024A116990

PATIENT
  Age: 21 Year
  Sex: Female

DRUGS (1)
  1. KYLEENA [Suspect]
     Active Substance: LEVONORGESTREL
     Dosage: 17.5?G/DAY
     Route: 015
     Dates: start: 2018

REACTIONS (3)
  - Device breakage [None]
  - Complication of device removal [None]
  - Device use issue [None]
